FAERS Safety Report 11243046 (Version 1)
Quarter: 2015Q3

REPORT INFORMATION
  Report Type: Spontaneous
  Country: PT (occurrence: PT)
  Receive Date: 20150707
  Receipt Date: 20150707
  Transmission Date: 20151125
  Serious: Yes (Other)
  Sender: FDA-Public Use
  Company Number: PT-PFIZER INC-2015200956

PATIENT

DRUGS (3)
  1. CEFTRIAXONE. [Suspect]
     Active Substance: CEFTRIAXONE
     Indication: PYELONEPHRITIS ACUTE
     Dosage: 2 G, DAILY
     Route: 064
  2. CLINDAMYCIN HCL [Suspect]
     Active Substance: CLINDAMYCIN HYDROCHLORIDE
     Indication: PYELONEPHRITIS ACUTE
     Dosage: 600 MG, 3X/DAY
     Route: 064
  3. CLOTRIMAZOLE. [Concomitant]
     Active Substance: CLOTRIMAZOLE
     Indication: VAGINAL DISCHARGE
     Dosage: UNK
     Route: 064

REACTIONS (3)
  - Amniotic cavity infection [Unknown]
  - Foetal distress syndrome [Unknown]
  - Maternal exposure during pregnancy [Unknown]
